FAERS Safety Report 25275030 (Version 1)
Quarter: 2025Q2

REPORT INFORMATION
  Report Type: Spontaneous
  Country: DE (occurrence: DE)
  Receive Date: 20250506
  Receipt Date: 20250506
  Transmission Date: 20250717
  Serious: Yes (Life-Threatening, Hospitalization, Other)
  Sender: BOEHRINGER INGELHEIM
  Company Number: None

PATIENT
  Age: 84 Year
  Sex: Male

DRUGS (13)
  1. JARDIANCE [Suspect]
     Active Substance: EMPAGLIFLOZIN
     Indication: Insulin-requiring type 2 diabetes mellitus
     Dosage: 1-0-0 - UNKNOWN START
     Dates: end: 20250131
  2. Allopurinol-ratiopharm 300mg Tabletten [Concomitant]
     Indication: Product used for unknown indication
     Dosage: 0.5-0-0
  3. Ezetimib STADA 10 mg Tabletten [Concomitant]
     Indication: Product used for unknown indication
     Dosage: 1-0-0
  4. L-Thyrox HEXAL 125 Mikrogramm [Concomitant]
     Indication: Product used for unknown indication
     Dosage: 1-0-0
  5. Nebivolol STADA 5 mg Tabletten [Concomitant]
     Indication: Product used for unknown indication
     Dosage: 1-0-1
  6. Pantoprazol Aristo 40 mg magensaftresistente Tabletten [Concomitant]
     Indication: Product used for unknown indication
     Dosage: 1-0-0
  7. ROSUVASTATIN CALCIUM [Concomitant]
     Active Substance: ROSUVASTATIN CALCIUM
     Indication: Product used for unknown indication
     Dosage: 0-0-1
  8. Entresto 49 mg/51 mg Filmtabletten [Concomitant]
     Indication: Product used for unknown indication
     Dosage: 1-0-1
  9. ALDACTONE [Concomitant]
     Active Substance: SPIRONOLACTONE
     Indication: Product used for unknown indication
     Dosage: 1-0-0
  10. Torasemid HEXAL 5 mg Tabletten [Concomitant]
     Indication: Product used for unknown indication
     Dosage: 0.5-0-0
  11. Xipamid AAA-Pharma 10mg Tabletten [Concomitant]
     Indication: Product used for unknown indication
     Dosage: 1-0-0
  12. Toujeo 300 Einheiten/ml Injektionsl?sung in Fertigpen [Concomitant]
     Indication: Product used for unknown indication
  13. SPIRIVA RESPIMAT [Concomitant]
     Active Substance: TIOTROPIUM BROMIDE
     Indication: Product used for unknown indication
     Dosage: 1-0-0

REACTIONS (5)
  - Scrotal abscess [Not Recovered/Not Resolved]
  - Device related infection [Not Recovered/Not Resolved]
  - Hypotension [Not Recovered/Not Resolved]
  - General physical health deterioration [Not Recovered/Not Resolved]
  - Disturbance in attention [Not Recovered/Not Resolved]

NARRATIVE: CASE EVENT DATE: 20250127
